FAERS Safety Report 5373873-6 (Version None)
Quarter: 2007Q2

REPORT INFORMATION
  Report Type: 
  Country: None (occurrence: None)
  Receive Date: 20070628
  Receipt Date: 20070619
  Transmission Date: 20071010
  Serious: Yes (Other)
  Sender: FDA-Public Use
  Company Number: US-PFIZER INC-2007050254

PATIENT
  Sex: Female
  Weight: 62.272 kg

DRUGS (1)
  1. NORVASC [Suspect]
     Indication: HYPERTENSION
     Dosage: DAILY DOSE:2.5MG-TEXT:2.5 MG ONCE DAILY
     Route: 048

REACTIONS (3)
  - BUNION OPERATION [None]
  - HYSTERECTOMY [None]
  - TOE OPERATION [None]
